FAERS Safety Report 18224725 (Version 6)
Quarter: 2023Q1

REPORT INFORMATION
  Report Type: Other
  Country: PA (occurrence: PA)
  Receive Date: 20200903
  Receipt Date: 20230202
  Transmission Date: 20230417
  Serious: Yes (Other)
  Sender: FDA-Public Use
  Company Number: PA-002147023-NVSC2020PA136605

PATIENT
  Age: 52 Year
  Sex: Female
  Weight: 81.633 kg

DRUGS (14)
  1. XOLAIR [Suspect]
     Active Substance: OMALIZUMAB
     Indication: Chronic spontaneous urticaria
     Route: 065
     Dates: start: 2013
  2. XOLAIR [Suspect]
     Active Substance: OMALIZUMAB
     Indication: Urticaria chronic
     Dosage: 300 MG/KG, QMO
     Route: 058
     Dates: start: 20170112
  3. XOLAIR [Suspect]
     Active Substance: OMALIZUMAB
     Indication: Angioedema
     Dosage: 150 MG ((150MG (1 VIAL) MORE THAN NORMAL DOSE))
     Route: 058
     Dates: start: 20200513
  4. XOLAIR [Suspect]
     Active Substance: OMALIZUMAB
     Route: 058
     Dates: start: 20160801
  5. XOLAIR [Suspect]
     Active Substance: OMALIZUMAB
     Dosage: 450 MG, QMO
     Route: 058
  6. XOLAIR [Suspect]
     Active Substance: OMALIZUMAB
     Route: 058
     Dates: start: 20220103
  7. XOLAIR [Suspect]
     Active Substance: OMALIZUMAB
     Route: 058
     Dates: start: 202202
  8. XOLAIR [Suspect]
     Active Substance: OMALIZUMAB
     Dosage: UNK (3 VIALS)
     Route: 058
     Dates: start: 20220516
  9. PREDNISONE [Suspect]
     Active Substance: PREDNISONE
     Indication: Asthma
     Dosage: 1 DOSAGE FORM, QD
     Route: 065
  10. PREDNISONE [Suspect]
     Active Substance: PREDNISONE
     Route: 065
  11. PREDNISONE [Suspect]
     Active Substance: PREDNISONE
     Route: 065
  12. HYDROXYZINE [Suspect]
     Active Substance: HYDROXYZINE HYDROCHLORIDE
     Indication: Product used for unknown indication
     Route: 065
  13. ERGOCALCIFEROL [Concomitant]
     Active Substance: ERGOCALCIFEROL
     Indication: Product used for unknown indication
     Dosage: 10000 IU, QD
     Route: 065
  14. METHOTREXATE [Concomitant]
     Active Substance: METHOTREXATE
     Indication: Product used for unknown indication
     Dosage: 15 MG, QW
     Dates: start: 202202

REACTIONS (20)
  - Immunosuppression [Unknown]
  - Asthma [Not Recovered/Not Resolved]
  - Breast cellulitis [Unknown]
  - Cellulitis [Unknown]
  - Drug ineffective [Unknown]
  - Urticaria [Not Recovered/Not Resolved]
  - Quality of life decreased [Unknown]
  - Insomnia [Unknown]
  - Mean platelet volume decreased [Unknown]
  - Sinusitis [Recovering/Resolving]
  - White blood cell count increased [Unknown]
  - Lymphocyte count increased [Unknown]
  - Neutrophil count increased [Unknown]
  - High density lipoprotein decreased [Unknown]
  - Headache [Recovering/Resolving]
  - Rhinitis allergic [Recovering/Resolving]
  - Swelling face [Unknown]
  - Hirsutism [Unknown]
  - Off label use [Unknown]
  - Product dispensing error [Unknown]

NARRATIVE: CASE EVENT DATE: 20191101
